FAERS Safety Report 4371422-2 (Version None)
Quarter: 2004Q2

REPORT INFORMATION
  Report Type: 
  Country: None (occurrence: None)
  Receive Date: 20040601
  Receipt Date: 20040212
  Transmission Date: 20050107
  Serious: No
  Sender: FDA-Public Use
  Company Number: 701646

PATIENT
  Age: 50 Year
  Sex: Male

DRUGS (1)
  1. AMEVIVE [Suspect]
     Indication: PSORIASIS
     Dates: start: 20040101, end: 20040201

REACTIONS (1)
  - T-LYMPHOCYTE COUNT DECREASED [None]
